FAERS Safety Report 18162286 (Version 1)
Quarter: 2020Q3

REPORT INFORMATION
  Report Type: Spontaneous
  Country: US (occurrence: US)
  Receive Date: 20200818
  Receipt Date: 20200818
  Transmission Date: 20201103
  Serious: No
  Sender: FDA-Public Use
  Company Number: None

PATIENT
  Age: 68 Year
  Sex: Male
  Weight: 97.65 kg

DRUGS (13)
  1. WARFARIN [Concomitant]
     Active Substance: WARFARIN
  2. VITAMIN D [Concomitant]
     Active Substance: VITAMIN D NOS
  3. TRELEGY ELLIPTA [Suspect]
     Active Substance: FLUTICASONE FUROATE\UMECLIDINIUM BROMIDE\VILANTEROL TRIFENATATE
     Indication: EMPHYSEMA
     Dosage: ?          QUANTITY:1 CAPSULE(S);?
     Route: 055
  4. ALPRAZOLAM. [Concomitant]
     Active Substance: ALPRAZOLAM
  5. ATORVASTATIN [Concomitant]
     Active Substance: ATORVASTATIN
  6. LISINOPRIL. [Concomitant]
     Active Substance: LISINOPRIL
  7. FOLIC ACID. [Concomitant]
     Active Substance: FOLIC ACID
  8. CITALOPRAM [Concomitant]
     Active Substance: CITALOPRAM HYDROBROMIDE
  9. ZINC. [Concomitant]
     Active Substance: ZINC
  10. OXAPROZIN. [Concomitant]
     Active Substance: OXAPROZIN
  11. B COMPLEX VITAMIN [Concomitant]
  12. PANTOPRAZOLE [Concomitant]
     Active Substance: PANTOPRAZOLE
  13. CYCLOBENZAPRINE. [Concomitant]
     Active Substance: CYCLOBENZAPRINE

REACTIONS (1)
  - Chest pain [None]

NARRATIVE: CASE EVENT DATE: 20200807
